FAERS Safety Report 17043432 (Version 1)
Quarter: 2019Q4

REPORT INFORMATION
  Report Type: Spontaneous
  Country: US (occurrence: US)
  Receive Date: 20191118
  Receipt Date: 20191118
  Transmission Date: 20200122
  Serious: No
  Sender: FDA-Public Use
  Company Number: US-THERAPEUTICSMD-2019TMD02964

PATIENT
  Sex: Female
  Weight: 60.32 kg

DRUGS (6)
  1. VITAMIN D [Concomitant]
     Active Substance: VITAMIN D NOS
  2. MAGNESIUM [Concomitant]
     Active Substance: MAGNESIUM
  3. BIJUVA [Suspect]
     Active Substance: ESTRADIOL\PROGESTERONE
     Indication: POSTMENOPAUSE
     Dosage: 1 CAPSULES, 1X/DAY IN THE EVENING
     Route: 048
     Dates: start: 201906
  4. PROBIOTIC [Concomitant]
     Active Substance: PROBIOTICS NOS
  5. CHONDROITIN MSM [Concomitant]
  6. COLLAGEN SUPPLEMENT [Concomitant]

REACTIONS (3)
  - Off label use [Not Recovered/Not Resolved]
  - Arthropod sting [Recovered/Resolved]
  - Vaginal haemorrhage [Not Recovered/Not Resolved]

NARRATIVE: CASE EVENT DATE: 2019
